FAERS Safety Report 6938720-7 (Version None)
Quarter: 2010Q3

REPORT INFORMATION
  Report Type: 
  Country: None (occurrence: None)
  Receive Date: 20100824
  Receipt Date: 20100813
  Transmission Date: 20110219
  Serious: Yes (Death)
  Sender: FDA-Public Use
  Company Number: US-MYLANLABS-2010S1014249

PATIENT
  Age: 51 Year
  Sex: Female

DRUGS (9)
  1. CLOZAPINE [Suspect]
     Route: 048
     Dates: start: 20090829
  2. CLOZAPINE [Suspect]
     Route: 048
     Dates: start: 20090829
  3. PAROXETINE HCL [Concomitant]
  4. CYTOMEL [Concomitant]
  5. SYNTHROID [Concomitant]
  6. DETROL [Concomitant]
  7. MELOXCAM [Concomitant]
  8. OMEPRAZOLE [Concomitant]
  9. SIMVASTATIN [Concomitant]

REACTIONS (3)
  - ASPIRATION [None]
  - COMPLETED SUICIDE [None]
  - OVERDOSE [None]
